FAERS Safety Report 5402007-4 (Version None)
Quarter: 2007Q3

REPORT INFORMATION
  Report Type: 
  Country: None (occurrence: None)
  Receive Date: 20070727
  Receipt Date: 20070718
  Transmission Date: 20080115
  Serious: Yes (Hospitalization)
  Sender: FDA-Public Use
  Company Number: 2007-03369

PATIENT
  Age: 15 Year
  Sex: Female

DRUGS (2)
  1. METHYLPHENIDATE HCL [Suspect]
     Indication: ATTENTION DEFICIT/HYPERACTIVITY DISORDER
     Dosage: 18 MG DAILY, ORAL
     Route: 048
     Dates: start: 20070101, end: 20070101
  2. RISPERIDONE [Suspect]
     Indication: ATTENTION DEFICIT/HYPERACTIVITY DISORDER
     Dosage: 1 MG, DAILY; ORAL
     Route: 048
     Dates: start: 20070101, end: 20070101

REACTIONS (4)
  - AGITATION [None]
  - DISCOMFORT [None]
  - DRUG INTERACTION [None]
  - IRRITABILITY [None]
